FAERS Safety Report 16821107 (Version 1)
Quarter: 2019Q3

REPORT INFORMATION
  Report Type: Spontaneous
  Country: US (occurrence: US)
  Receive Date: 20190918
  Receipt Date: 20190918
  Transmission Date: 20191005
  Serious: Yes (Other)
  Sender: FDA-Public Use
  Company Number: US-ALIMERA SCIENCES LIMITED-US-FA-2017-003696

PATIENT
  Sex: Male

DRUGS (7)
  1. OZURDEX [Concomitant]
     Active Substance: DEXAMETHASONE
     Indication: DIABETIC RETINAL OEDEMA
     Dosage: 0.7 MG, UNK
     Route: 031
     Dates: start: 20150629, end: 20160817
  2. TIMOLOL. [Concomitant]
     Active Substance: TIMOLOL
     Indication: INTRAOCULAR PRESSURE INCREASED
     Dosage: UNK
     Route: 061
     Dates: start: 20160224, end: 20170126
  3. COMBIGAN [Concomitant]
     Active Substance: BRIMONIDINE TARTRATE\TIMOLOL MALEATE
     Indication: INTRAOCULAR PRESSURE INCREASED
     Dosage: UNK
     Route: 061
     Dates: start: 20170126
  4. ILUVIEN [Suspect]
     Active Substance: FLUOCINOLONE ACETONIDE
     Indication: DIABETIC RETINAL OEDEMA
     Dosage: 0.25 ?G, QD, BOTH EYES
     Route: 031
     Dates: start: 20161011
  5. TIMOLOL. [Concomitant]
     Active Substance: TIMOLOL
     Indication: BORDERLINE GLAUCOMA
  6. ILUVIEN [Suspect]
     Active Substance: FLUOCINOLONE ACETONIDE
     Dosage: UNK
  7. COMBIGAN [Concomitant]
     Active Substance: BRIMONIDINE TARTRATE\TIMOLOL MALEATE
     Indication: BORDERLINE GLAUCOMA

REACTIONS (2)
  - Intraocular pressure increased [Recovered/Resolved]
  - Trabeculectomy [Recovered/Resolved]
